FAERS Safety Report 12497843 (Version 1)
Quarter: 2016Q2

REPORT INFORMATION
  Report Type: Spontaneous
  Country: GB (occurrence: GB)
  Receive Date: 20160625
  Receipt Date: 20160625
  Transmission Date: 20160815
  Serious: Yes (Other)
  Sender: FDA-Public Use
  Company Number: GB-APOTEX-2016AP009314

PATIENT

DRUGS (9)
  1. PAROXETINE. [Suspect]
     Active Substance: PAROXETINE
     Indication: PRODUCT USED FOR UNKNOWN INDICATION
     Dosage: UNK
     Route: 065
  2. ZIMOVANE [Concomitant]
     Active Substance: ZOPICLONE
     Indication: PRODUCT USED FOR UNKNOWN INDICATION
     Dosage: UNK
  3. PARACETAMOL [Concomitant]
     Active Substance: ACETAMINOPHEN
     Indication: PRODUCT USED FOR UNKNOWN INDICATION
     Dosage: UNK
  4. EFFEXOR [Concomitant]
     Active Substance: VENLAFAXINE HYDROCHLORIDE
     Indication: DEPRESSION
     Dates: start: 20010713, end: 20021216
  5. PAXIL [Suspect]
     Active Substance: PAROXETINE HYDROCHLORIDE
     Indication: DEPRESSION
     Dosage: UNK
     Route: 065
     Dates: start: 20001123
  6. SERTRALINE [Concomitant]
     Active Substance: SERTRALINE HYDROCHLORIDE
     Indication: PRODUCT USED FOR UNKNOWN INDICATION
     Dosage: UNK
  7. QUETIAPINE. [Concomitant]
     Active Substance: QUETIAPINE
     Indication: PRODUCT USED FOR UNKNOWN INDICATION
  8. STILNOCT [Concomitant]
     Active Substance: ZOLPIDEM TARTRATE
     Indication: PRODUCT USED FOR UNKNOWN INDICATION
     Dosage: UNK
  9. ANAFRANIL [Concomitant]
     Active Substance: CLOMIPRAMINE HYDROCHLORIDE
     Indication: PRODUCT USED FOR UNKNOWN INDICATION
     Dosage: UNK

REACTIONS (31)
  - Fatigue [Unknown]
  - Muscular weakness [Unknown]
  - Somnolence [Unknown]
  - Tearfulness [Unknown]
  - Aggression [Unknown]
  - Sleep disorder [Unknown]
  - Agitation [Unknown]
  - Paraesthesia [Unknown]
  - Muscle disorder [Unknown]
  - Hyperhidrosis [Unknown]
  - Dizziness [Unknown]
  - Feeling of despair [Unknown]
  - Circulatory collapse [Unknown]
  - Confusional state [Unknown]
  - Helplessness [Unknown]
  - Seizure [Unknown]
  - Tremor [Unknown]
  - Nausea [Unknown]
  - Terminal insomnia [Unknown]
  - Suicidal ideation [Unknown]
  - Altered state of consciousness [Unknown]
  - Disorientation [Unknown]
  - Panic attack [Unknown]
  - Nightmare [Unknown]
  - Insomnia [Unknown]
  - Drug withdrawal syndrome [Unknown]
  - Vertigo [Unknown]
  - Delusion [Unknown]
  - Anxiety [Unknown]
  - Affect lability [Unknown]
  - Hallucination, auditory [Unknown]
